FAERS Safety Report 7167892-7 (Version None)
Quarter: 2010Q4

REPORT INFORMATION
  Report Type: 
  Country: None (occurrence: None)
  Receive Date: 20101216
  Receipt Date: 20101208
  Transmission Date: 20110411
  Serious: Yes (Other)
  Sender: FDA-Public Use
  Company Number: CA-PFIZER INC-2010169021

PATIENT
  Age: 47 Year
  Sex: Male
  Weight: 90 kg

DRUGS (9)
  1. RELPAX [Suspect]
     Indication: MIGRAINE
     Dosage: 20 MG (ONE FOR MIGRAINE AND REPEAT ONLY AS NEEDED)
     Route: 048
     Dates: start: 20101111
  2. METHADONE [Concomitant]
     Dosage: UNK
  3. FLEXERIL [Concomitant]
     Dosage: UNK
  4. GABAPENTIN [Concomitant]
     Dosage: UNK
  5. NABILONE [Concomitant]
     Dosage: UNK
  6. PROCYCLIDINE [Concomitant]
     Dosage: UNK
  7. CLONIDINE [Concomitant]
     Dosage: UNK
  8. CLONAZEPAM [Concomitant]
     Dosage: UNK
  9. FIORINAL-C [Concomitant]
     Dosage: UNK

REACTIONS (1)
  - GRAND MAL CONVULSION [None]
